FAERS Safety Report 19031120 (Version 1)
Quarter: 2021Q1

REPORT INFORMATION
  Report Type: Spontaneous
  Country: US (occurrence: US)
  Receive Date: 20210319
  Receipt Date: 20210319
  Transmission Date: 20210420
  Serious: Yes (Life-Threatening, Hospitalization)
  Sender: FDA-Public Use
  Company Number: US-MYLANLABS-2021M1016768

PATIENT
  Age: 36 Year
  Sex: Male

DRUGS (11)
  1. AMLODIPINE [Suspect]
     Active Substance: AMLODIPINE BESYLATE
     Indication: PRODUCT USED FOR UNKNOWN INDICATION
     Dosage: UNK
     Route: 048
  2. DOBUTAMINE [Suspect]
     Active Substance: DOBUTAMINE HYDROCHLORIDE
     Indication: CARDIOGENIC SHOCK
     Dosage: 7 MICROGRAM/KILOGRAM, QMINUTE
  3. NOREPINEPHRINE. [Suspect]
     Active Substance: NOREPINEPHRINE
     Indication: CARDIOGENIC SHOCK
     Dosage: 0.6 MICROGRAM/KILOGRAM, QMINUTE
  4. VASOPRESSIN. [Suspect]
     Active Substance: VASOPRESSIN
     Indication: CARDIOGENIC SHOCK
     Dosage: 0.03 INTERNATIONAL UNIT, QMINUTE
  5. EPINEPHRINE. [Suspect]
     Active Substance: EPINEPHRINE
     Indication: CARDIOGENIC SHOCK
     Dosage: 0.04 MICROGRAM/KILOGRAM, QMINUTE
  6. FAT EMULSION NOS [Suspect]
     Active Substance: EGG PHOSPHOLIPIDS\SAFFLOWER OIL\SOYBEAN OIL
     Indication: DRUG THERAPY
     Dosage: 1.5 ML/KG
     Route: 065
  7. ATENOLOL. [Suspect]
     Active Substance: ATENOLOL
     Indication: PRODUCT USED FOR UNKNOWN INDICATION
     Dosage: UNK
     Route: 048
  8. INSULIN GLARGINE [Suspect]
     Active Substance: INSULIN GLARGINE
     Indication: DRUG THERAPY
     Dosage: HIGH DOSE: 10 UNITS/KG/HR
     Route: 065
  9. GLUCAGON. [Suspect]
     Active Substance: GLUCAGON
     Indication: DRUG THERAPY
     Dosage: 10 MG/HR
     Route: 065
  10. NOREPINEPHRINE. [Suspect]
     Active Substance: NOREPINEPHRINE
     Dosage: 0.46 MICROGRAM/KILOGRAM, QMINUTE
  11. METHYLENE BLUE. [Suspect]
     Active Substance: METHYLENE BLUE
     Indication: DRUG THERAPY
     Dosage: 2 MILLIGRAM/KILOGRAM
     Route: 065

REACTIONS (5)
  - Overdose [Recovering/Resolving]
  - Drug ineffective [Unknown]
  - Cardiogenic shock [Recovering/Resolving]
  - Cardiotoxicity [Recovering/Resolving]
  - Acute kidney injury [Recovering/Resolving]
